FAERS Safety Report 9087417 (Version 1)
Quarter: 2013Q1

REPORT INFORMATION
  Report Type: Report from Study
  Country: US (occurrence: US)
  Receive Date: 20130201
  Receipt Date: 20130201
  Transmission Date: 20140127
  Serious: No
  Sender: FDA-Public Use
  Company Number: US-ABBOTT-12P-163-0990434-00

PATIENT
  Age: 25 Year
  Sex: Male

DRUGS (3)
  1. HUMIRA [Suspect]
     Indication: CROHN^S DISEASE
     Dates: start: 20120831
  2. PROTONIX [Concomitant]
     Indication: PRODUCT USED FOR UNKNOWN INDICATION
     Dosage: EVERY MORNING (MINIMAL DOSE)
  3. ENTOCORT [Concomitant]
     Indication: PRODUCT USED FOR UNKNOWN INDICATION
     Dosage: DAILY UNTIL AFTER TAKING 80MG OF HUMIRA PEN AND THEN MEDICATION WAS STOPPED.

REACTIONS (5)
  - Myalgia [Recovered/Resolved]
  - Injection site urticaria [Unknown]
  - Injection site pain [Unknown]
  - Injection site bruising [Unknown]
  - Pruritus [Unknown]
